FAERS Safety Report 8213192-3 (Version None)
Quarter: 2012Q1

REPORT INFORMATION
  Report Type: 
  Country: None (occurrence: None)
  Receive Date: 20120315
  Receipt Date: 20120305
  Transmission Date: 20120608
  Serious: Yes (Other)
  Sender: FDA-Public Use
  Company Number: FR-GILEAD-2012-0051749

PATIENT
  Sex: Male

DRUGS (5)
  1. NORVIR [Suspect]
     Indication: HIV INFECTION
     Dosage: 100 MG, QD
     Route: 048
     Dates: start: 20120120
  2. ATRAX [Concomitant]
     Dosage: UNK
     Dates: start: 20111229
  3. PREZISTA [Suspect]
     Indication: HIV INFECTION
     Dosage: 800 MG, QD
     Route: 048
     Dates: start: 20120120
  4. EBASTINE [Concomitant]
     Dosage: UNK
     Dates: start: 20111229
  5. TRUVADA [Suspect]
     Indication: HIV INFECTION
     Dosage: 1 DF, QD
     Route: 048
     Dates: start: 20120120

REACTIONS (2)
  - EOSINOPHIL COUNT INCREASED [None]
  - RASH MACULO-PAPULAR [None]
